FAERS Safety Report 5489582-9 (Version None)
Quarter: 2007Q4

REPORT INFORMATION
  Report Type: 
  Country: None (occurrence: None)
  Receive Date: 20071016
  Receipt Date: 20071016
  Transmission Date: 20080405
  Serious: No
  Sender: FDA-Public Use
  Company Number: None

PATIENT
  Age: 43 Year
  Sex: Female
  Weight: 65.7716 kg

DRUGS (1)
  1. AZITHROMYCIN [Suspect]
     Indication: LUNG INFECTION
     Dosage: 500MG 1ST DOSE, THEN 250 MG DAILY PO
     Route: 048
     Dates: start: 20070203, end: 20070207

REACTIONS (2)
  - AGEUSIA [None]
  - ANOSMIA [None]
